FAERS Safety Report 7392474-1 (Version None)
Quarter: 2011Q2

REPORT INFORMATION
  Report Type: 
  Country: None (occurrence: None)
  Receive Date: 20110404
  Receipt Date: 20101214
  Transmission Date: 20111010
  Serious: No
  Sender: FDA-Public Use
  Company Number: US-BAYER-2011-008763

PATIENT
  Sex: Male
  Weight: 63 kg

DRUGS (1)
  1. ALEVE [Suspect]
     Indication: BACK PAIN
     Dosage: UNK

REACTIONS (2)
  - SENSATION OF FOREIGN BODY [None]
  - VOMITING [None]
